FAERS Safety Report 7339382-X (Version None)
Quarter: 2011Q1

REPORT INFORMATION
  Report Type: 
  Country: None (occurrence: None)
  Receive Date: 20110308
  Receipt Date: 20110303
  Transmission Date: 20110831
  Serious: Yes (Death, Hospitalization)
  Sender: FDA-Public Use
  Company Number: US-US-EMD SERONO, INC.-232568J09USA

PATIENT
  Sex: Female

DRUGS (6)
  1. LISINOOPRIL [Concomitant]
     Indication: HYPERTENSION
  2. PROZAC [Concomitant]
     Indication: DEPRESSION
  3. ASPIRIN [Concomitant]
     Indication: ISCHAEMIC HEART DISEASE PROPHYLAXIS
  4. CRESTOR [Concomitant]
     Indication: HYPERCHOLESTEROLAEMIA
  5. REBIF [Suspect]
     Indication: MULTIPLE SCLEROSIS
     Route: 058
     Dates: start: 20091017, end: 20091111
  6. WELLBUTRIN [Concomitant]
     Indication: DEPRESSION

REACTIONS (3)
  - HEAD INJURY [None]
  - CEREBRAL HAEMORRHAGE [None]
  - FALL [None]
